FAERS Safety Report 11490551 (Version 5)
Quarter: 2015Q4

REPORT INFORMATION
  Report Type: Spontaneous
  Country: JP (occurrence: None)
  Receive Date: 20150910
  Receipt Date: 20151104
  Transmission Date: 20160304
  Serious: Yes (Death, Hospitalization, Other)
  Sender: FDA-Public Use
  Company Number: JP-MDT-ADR-2015-01754

PATIENT
  Age: 73 Year
  Sex: Male
  Weight: 51 kg

DRUGS (1)
  1. GABALON INTRATHECAL (0.2%) [Suspect]
     Active Substance: BACLOFEN
     Dosage: MINIMUM RATE

REACTIONS (4)
  - Pyrexia [None]
  - Therapeutic response decreased [None]
  - Pneumonia [None]
  - C-reactive protein increased [None]
